FAERS Safety Report 7706175-0 (Version None)
Quarter: 2011Q3

REPORT INFORMATION
  Report Type: 
  Country: None (occurrence: None)
  Receive Date: 20110824
  Receipt Date: 20110818
  Transmission Date: 20111222
  Serious: Yes (Death, Other)
  Sender: FDA-Public Use
  Company Number: US-ELI_LILLY_AND_COMPANY-US201108006610

PATIENT
  Sex: Male

DRUGS (1)
  1. ALIMTA [Suspect]
     Indication: THYMOMA
     Dosage: 500 MG/M2, OTHER
     Route: 042
     Dates: start: 20100604, end: 20101220

REACTIONS (4)
  - SEPSIS [None]
  - OFF LABEL USE [None]
  - DEATH [None]
  - NEUTROPENIA [None]
